FAERS Safety Report 9689484 (Version 1)
Quarter: 2013Q4

REPORT INFORMATION
  Report Type: Spontaneous
  Country: CH (occurrence: CH)
  Receive Date: 20131114
  Receipt Date: 20131114
  Transmission Date: 20140711
  Serious: Yes (Other)
  Sender: FDA-Public Use
  Company Number: CH-009507513-1311CHE002875

PATIENT
  Age: 31 Year
  Sex: Female

DRUGS (1)
  1. NUVARING [Suspect]
     Indication: CONTRACEPTION
     Dosage: 2.7 MG/11.7 MG, 1 PER 4 WEEKS
     Route: 067
     Dates: end: 20130414

REACTIONS (6)
  - Paraesthesia [Recovered/Resolved]
  - Headache [Recovered/Resolved]
  - Visual impairment [Recovered/Resolved]
  - Headache [Recovered/Resolved]
  - Nausea [Recovered/Resolved]
  - Hypertension [Recovered/Resolved]
